FAERS Safety Report 7302802-0 (Version None)
Quarter: 2011Q1

REPORT INFORMATION
  Report Type: 
  Country: None (occurrence: None)
  Receive Date: 20110218
  Receipt Date: 20110214
  Transmission Date: 20110831
  Serious: Yes (Life-Threatening)
  Sender: FDA-Public Use
  Company Number: RU-ASTRAZENECA-2011SE08632

PATIENT
  Age: 40 Year
  Sex: Female
  Weight: 73 kg

DRUGS (9)
  1. TRACRIUM [Concomitant]
     Indication: HYPOTONIA
     Route: 042
     Dates: start: 20110211, end: 20110211
  2. ATROPINE [Concomitant]
     Indication: HYPOTONIA
     Route: 042
     Dates: start: 20110211, end: 20110211
  3. ATROPINE [Concomitant]
     Indication: PREMEDICATION
     Route: 042
     Dates: start: 20110211, end: 20110211
  4. DIMEDROLE [Concomitant]
     Indication: PREMEDICATION
     Route: 042
     Dates: start: 20110211, end: 20110211
  5. DIMEDROLE [Concomitant]
     Indication: HYPOTONIA
     Route: 042
     Dates: start: 20110211, end: 20110211
  6. DORMICUM [Concomitant]
     Indication: PREMEDICATION
     Route: 042
     Dates: start: 20110211, end: 20110211
  7. DORMICUM [Concomitant]
     Indication: HYPOTONIA
     Route: 042
     Dates: start: 20110211, end: 20110211
  8. TRACRIUM [Concomitant]
     Indication: PREMEDICATION
     Route: 042
     Dates: start: 20110211, end: 20110211
  9. DIPRIVAN [Suspect]
     Indication: INDUCTION OF ANAESTHESIA
     Route: 042
     Dates: start: 20110211, end: 20110211

REACTIONS (1)
  - ANAPHYLACTIC SHOCK [None]
